FAERS Safety Report 4618614-2 (Version None)
Quarter: 2005Q1

REPORT INFORMATION
  Report Type: 
  Country: None (occurrence: None)
  Receive Date: 20050323
  Receipt Date: 20050316
  Transmission Date: 20050727
  Serious: Yes (Death, Hospitalization, Other)
  Sender: FDA-Public Use
  Company Number: 05-158

PATIENT
  Age: 40 Year
  Sex: 0

DRUGS (2)
  1. VERAPAMIL [Suspect]
     Indication: MICROALBUMINURIA
     Dosage: 1240MG, 1 IN 1 D
  2. VERAPAMIL [Suspect]
     Indication: PROPHYLAXIS
     Dosage: 1240MG, 1 IN 1 D

REACTIONS (1)
  - CARDIOVASCULAR DISORDER [None]
